FAERS Safety Report 16241239 (Version 1)
Quarter: 2019Q2

REPORT INFORMATION
  Report Type: Other
  Country: FR (occurrence: FR)
  Receive Date: 20190425
  Receipt Date: 20190425
  Transmission Date: 20190711
  Serious: Yes (Hospitalization)
  Sender: FDA-Public Use
  Company Number: FR-SEATTLE GENETICS-2019SGN01272

PATIENT
  Age: 68 Year
  Sex: Male
  Weight: 55 kg

DRUGS (6)
  1. GEMCITABINE [Suspect]
     Active Substance: GEMCITABINE\GEMCITABINE HYDROCHLORIDE
     Indication: ANGIOCENTRIC LYMPHOMA
     Dosage: 1680 MILLIGRAM
     Route: 041
     Dates: start: 20190215, end: 20190314
  2. CYTARABINE ACCORD [Suspect]
     Active Substance: CYTARABINE
     Indication: ANGIOCENTRIC LYMPHOMA
     Dosage: 40 MILLIGRAM
     Route: 037
     Dates: start: 20190315, end: 20190315
  3. ADCETRIS [Suspect]
     Active Substance: BRENTUXIMAB VEDOTIN
     Indication: ANGIOCENTRIC LYMPHOMA
     Dosage: 100 MILLIGRAM
     Route: 041
     Dates: start: 20190316, end: 20190316
  4. HYDROCORTISONE. [Suspect]
     Active Substance: HYDROCORTISONE
     Indication: ANGIOCENTRIC LYMPHOMA
     Dosage: 20 MILLIGRAM
     Route: 037
     Dates: start: 20190315, end: 20190315
  5. OXALIPLATINE ACCORD [Suspect]
     Active Substance: OXALIPLATIN
     Indication: ANGIOCENTRIC LYMPHOMA
     Dosage: 220 MILLIGRAM
     Route: 041
     Dates: start: 20190215, end: 20190314
  6. METHOTREXATE MYLAN [Suspect]
     Active Substance: METHOTREXATE SODIUM
     Indication: ANGIOCENTRIC LYMPHOMA
     Dosage: 15 MILLIGRAM
     Route: 037
     Dates: start: 20190315, end: 20190315

REACTIONS (4)
  - Paresis [Recovered/Resolved]
  - Diplegia [Recovered/Resolved]
  - Dysarthria [Recovered/Resolved]
  - Facial paralysis [Recovered/Resolved]

NARRATIVE: CASE EVENT DATE: 20190317
